FAERS Safety Report 9014387 (Version 2)
Quarter: 2013Q4

REPORT INFORMATION
  Report Type: Spontaneous
  Country: GB (occurrence: GB)
  Receive Date: 20130115
  Receipt Date: 20131008
  Transmission Date: 20140711
  Serious: Yes (Hospitalization)
  Sender: FDA-Public Use
  Company Number: GB-WATSON-2012-23411

PATIENT
  Age: 92 Year
  Sex: Female

DRUGS (5)
  1. AMOXICILLIN (UNKNOWN) [Suspect]
     Indication: PRODUCT USED FOR UNKNOWN INDICATION
     Dosage: 500 MG, TID
     Route: 048
     Dates: start: 20100610, end: 20100617
  2. AMOXICILLIN-CLAVULANATE (UNKNOWN) [Suspect]
     Indication: PRODUCT USED FOR UNKNOWN INDICATION
     Dosage: 1.2 G, TID  2 DOSES
     Route: 042
     Dates: start: 20110504, end: 20110504
  3. CIPROFLOXACIN HYDROCHLORIDE (UNKNOWN) [Suspect]
     Indication: MORAXELLA INFECTION
     Dosage: 500 MG, BID  11 DOSES
     Route: 048
     Dates: start: 20110505, end: 20110510
  4. CIPROFLOXACIN LACTATE (UNKNOWN) [Suspect]
     Indication: PRODUCT USED FOR UNKNOWN INDICATION
     Dosage: 400 MG, BID
     Route: 042
     Dates: start: 20110505, end: 20110510
  5. OMEPRAZOLE (UNKNOWN) [Suspect]
     Indication: PRODUCT USED FOR UNKNOWN INDICATION
     Dosage: UNKNOWN
     Route: 065

REACTIONS (13)
  - Clostridium difficile infection [Recovered/Resolved]
  - Pyrexia [Unknown]
  - Productive cough [Unknown]
  - Inflammatory marker increased [Unknown]
  - Diarrhoea [Unknown]
  - Pneumonia [Unknown]
  - Moraxella test positive [Unknown]
  - Norovirus test positive [Unknown]
  - Vomiting [Unknown]
  - Abdominal distension [Unknown]
  - Neutrophilia [Unknown]
  - Abdominal tenderness [Unknown]
  - C-reactive protein increased [Unknown]
